FAERS Safety Report 5322028-X (Version None)
Quarter: 2007Q2

REPORT INFORMATION
  Report Type: 
  Country: None (occurrence: None)
  Receive Date: 20070511
  Receipt Date: 20070430
  Transmission Date: 20071010
  Serious: Yes (Other)
  Sender: FDA-Public Use
  Company Number: HQWYE898030APR07

PATIENT
  Sex: Female

DRUGS (3)
  1. EUPANTOL [Suspect]
     Indication: ABDOMINAL PAIN
     Dosage: UNKNOWN
     Route: 065
  2. EUPANTOL [Suspect]
     Indication: PELVIC PAIN
  3. VISKALDIX [Concomitant]
     Indication: HYPERTENSION
     Dosage: ^1/2 TABLET DAILY^
     Route: 048

REACTIONS (2)
  - MALAISE [None]
  - RENAL FAILURE ACUTE [None]
